FAERS Safety Report 7280550-3 (Version None)
Quarter: 2011Q1

REPORT INFORMATION
  Report Type: 
  Country: None (occurrence: None)
  Receive Date: 20110208
  Receipt Date: 20101217
  Transmission Date: 20110831
  Serious: Yes (Hospitalization)
  Sender: FDA-Public Use
  Company Number: US-BAYER-201011597NA

PATIENT
  Sex: Female
  Weight: 75.283 kg

DRUGS (10)
  1. YAZ [Suspect]
     Indication: PRODUCT USED FOR UNKNOWN INDICATION
  2. OCELLA [Suspect]
     Indication: PRODUCT USED FOR UNKNOWN INDICATION
     Route: 048
  3. SYNTHROID [Concomitant]
  4. TYLENOL REGULAR [Concomitant]
  5. LEVAQUIN [Concomitant]
  6. HYDROCODONE BITARTRATE [Concomitant]
     Dosage: UNK
     Dates: start: 20081130
  7. MORPHINE SULFATE [Concomitant]
     Indication: PAIN
     Dosage: UNK
     Dates: start: 20081130
  8. ATIVAN [Concomitant]
     Dosage: UNK UNK, PRN
  9. NORCO [Concomitant]
     Dosage: UNK UNK, PRN
  10. YASMIN [Suspect]
     Indication: PRODUCT USED FOR UNKNOWN INDICATION
     Route: 048

REACTIONS (2)
  - PULMONARY EMBOLISM [None]
  - PULMONARY INFARCTION [None]
